FAERS Safety Report 4335061-1 (Version None)
Quarter: 2004Q2

REPORT INFORMATION
  Report Type: 
  Country: None (occurrence: None)
  Receive Date: 20040408
  Receipt Date: 20040402
  Transmission Date: 20050107
  Serious: Yes (Hospitalization)
  Sender: FDA-Public Use
  Company Number: FR-GLAXOSMITHKLINE-B0328764A

PATIENT
  Age: 75 Year
  Sex: Female

DRUGS (7)
  1. AMOXICILLIN [Suspect]
     Indication: URINARY TRACT INFECTION
     Dosage: 2G PER DAY
     Route: 048
     Dates: end: 20040226
  2. ENDOTELON [Suspect]
     Dosage: 50MG PER DAY
     Route: 048
     Dates: start: 20010101, end: 20040227
  3. ALDACTONE [Suspect]
     Dosage: 25MG PER DAY
     Route: 048
     Dates: start: 20000101, end: 20040227
  4. LASIX [Suspect]
     Dosage: 20MG PER DAY
     Route: 048
     Dates: start: 20000101, end: 20040227
  5. APROVEL [Suspect]
     Dosage: 150MG PER DAY
     Route: 048
     Dates: start: 20000101, end: 20040228
  6. TEGELINE [Suspect]
     Indication: POLYMYOSITIS
     Dosage: 35G PER DAY
     Route: 042
     Dates: start: 20040224, end: 20040226
  7. OFLOCET [Concomitant]
     Indication: URINARY TRACT INFECTION
     Route: 065
     Dates: start: 20040226, end: 20040227

REACTIONS (2)
  - PYREXIA [None]
  - RENAL FAILURE ACUTE [None]
